FAERS Safety Report 21163805 (Version 1)
Quarter: 2022Q3

REPORT INFORMATION
  Report Type: Report from Study
  Country: US (occurrence: US)
  Receive Date: 20220803
  Receipt Date: 20220803
  Transmission Date: 20221027
  Serious: Yes (Hospitalization, Other)
  Sender: FDA-Public Use
  Company Number: US-ABBVIE-22K-163-4370915-00

PATIENT
  Sex: Female

DRUGS (1)
  1. HUMIRA [Suspect]
     Active Substance: ADALIMUMAB
     Indication: Rheumatoid arthritis
     Dosage: CITRATE FREE
     Route: 058
     Dates: start: 20200530, end: 20211229

REACTIONS (7)
  - Loss of consciousness [Unknown]
  - Spinal operation [Recovering/Resolving]
  - COVID-19 pneumonia [Recovering/Resolving]
  - Pulmonary embolism [Unknown]
  - Spinal fracture [Not Recovered/Not Resolved]
  - Blood glucose decreased [Unknown]
  - Road traffic accident [Unknown]

NARRATIVE: CASE EVENT DATE: 20220101
